FAERS Safety Report 8988796 (Version 3)
Quarter: 2013Q2

REPORT INFORMATION
  Report Type: Spontaneous
  Country: US (occurrence: US)
  Receive Date: 20121227
  Receipt Date: 20130402
  Transmission Date: 20140414
  Serious: Yes (Hospitalization)
  Sender: FDA-Public Use
  Company Number: US-FRI-1000041209

PATIENT
  Age: 57 Year
  Sex: Male
  Weight: 75.6 kg

DRUGS (21)
  1. TEFLARO [Suspect]
     Indication: STAPHYLOCOCCAL INFECTION
     Dosage: 1200 MG
     Route: 042
     Dates: start: 20120823, end: 20121016
  2. EPLERENONE [Concomitant]
     Dosage: 25 MG
     Route: 048
  3. TORSEMIDE [Concomitant]
     Dosage: 80 MG
     Route: 048
  4. PRAVASTATIN [Concomitant]
     Dosage: 20 MG
     Route: 048
  5. ASPIRIN [Concomitant]
     Dosage: 162 MG
     Route: 048
  6. COUMADIN [Concomitant]
     Dosage: 5 MG
  7. VANCOMYCIN [Concomitant]
     Dosage: 250 MG
     Route: 048
  8. LACTOBACILLUS [Concomitant]
     Dosage: 1 CAPSULE DAILY
     Route: 048
  9. POTASSIUM [Concomitant]
     Dosage: 40 MEQ
     Route: 048
  10. MAG OXIDE [Concomitant]
     Dosage: 1600 MG
     Route: 048
  11. AGGRENOX [Concomitant]
     Dosage: 25/200 MG TWICE DAILY
     Route: 048
     Dates: end: 20121022
  12. ALLOPURINOL [Concomitant]
     Dosage: 400 MG
     Route: 048
  13. VITAMIN C [Concomitant]
     Dosage: 500 MG
     Route: 048
  14. SYNTHROID [Concomitant]
     Indication: HYPOTHYROIDISM
     Dosage: 125 MCG
     Route: 048
  15. TRAZODONE [Concomitant]
     Indication: INSOMNIA
     Dosage: 100 MG AT BEDTIME AS NEEDED
     Route: 048
  16. PROTONIX [Concomitant]
     Dosage: 40 MG
     Route: 048
  17. MVI [Concomitant]
     Dosage: 1 TABLET DAILY
  18. OXAZEPAM [Concomitant]
     Indication: ANXIETY
     Dosage: 10 MG TWICE DAILY AS NEEDED
     Route: 048
  19. TYLENOL/CODEINE [Concomitant]
     Dosage: 300/30 MG EVERY FOUR HOURS AS NEEDED
     Route: 048
  20. COLACE [Concomitant]
     Dosage: 100 MG TWICE DAILY AS NEEDED
     Route: 048
  21. FLEXERIL [Concomitant]
     Dosage: 30 MG
     Route: 048

REACTIONS (6)
  - Haemolysis [Recovered/Resolved]
  - Off label use [Recovered/Resolved]
  - Fluid overload [Unknown]
  - Musculoskeletal discomfort [Recovering/Resolving]
  - Renal impairment [Recovering/Resolving]
  - Cardiac failure [Recovering/Resolving]
